FAERS Safety Report 12717818 (Version 2)
Quarter: 2016Q3

REPORT INFORMATION
  Report Type: Spontaneous
  Country: CO (occurrence: CO)
  Receive Date: 20160906
  Receipt Date: 20160909
  Transmission Date: 20161109
  Serious: Yes (Other)
  Sender: FDA-Public Use
  Company Number: CO-PFIZER INC-2016410768

PATIENT
  Age: 71 Year
  Sex: Female

DRUGS (2)
  1. METHOTREXATE. [Suspect]
     Active Substance: METHOTREXATE
     Indication: RHEUMATOID ARTHRITIS
     Dosage: 6 DF, WEEKLY
     Route: 048
     Dates: start: 2011
  2. METHOTREXATE. [Suspect]
     Active Substance: METHOTREXATE
     Dosage: 3 DF, WEEKLY
     Route: 048
     Dates: end: 2015

REACTIONS (1)
  - Drug-induced liver injury [Recovered/Resolved]
